FAERS Safety Report 18464413 (Version 1)
Quarter: 2020Q4

REPORT INFORMATION
  Report Type: Spontaneous
  Country: FR (occurrence: FR)
  Receive Date: 20201104
  Receipt Date: 20201104
  Transmission Date: 20210114
  Serious: Yes (Other)
  Sender: FDA-Public Use
  Company Number: FR-SA-2020SA309905

PATIENT

DRUGS (5)
  1. VALPROMIDE [Interacting]
     Active Substance: VALPROMIDE
     Dosage: 1200 MG,SUBSEQUENTLY INCREASED
  2. ISONIAZID. [Interacting]
     Active Substance: ISONIAZID
     Indication: PULMONARY TUBERCULOSIS
     Dosage: UNK
  3. VALPROMIDE [Interacting]
     Active Substance: VALPROMIDE
     Indication: BIPOLAR DISORDER
     Dosage: 900 MG
     Dates: start: 201107
  4. RIFAMPICIN [Suspect]
     Active Substance: RIFAMPIN
     Indication: PULMONARY TUBERCULOSIS
  5. PYRAZINAMIDE. [Interacting]
     Active Substance: PYRAZINAMIDE
     Indication: PULMONARY TUBERCULOSIS
     Dosage: UNK

REACTIONS (4)
  - Disease recurrence [Unknown]
  - Mania [Unknown]
  - Drug interaction [Unknown]
  - Cerebral atrophy [Recovered/Resolved]

NARRATIVE: CASE EVENT DATE: 201402
